FAERS Safety Report 12902736 (Version 1)
Quarter: 2016Q4

REPORT INFORMATION
  Report Type: Spontaneous
  Country: US (occurrence: US)
  Receive Date: 20161102
  Receipt Date: 20161102
  Transmission Date: 20170207
  Serious: Yes (Other)
  Sender: FDA-Public Use
  Company Number: US-JNJFOC-20160906136

PATIENT
  Sex: Female

DRUGS (16)
  1. ALBUTEROL. [Concomitant]
     Active Substance: ALBUTEROL
     Route: 065
  2. HYOSCYAMINE. [Concomitant]
     Active Substance: HYOSCYAMINE
     Route: 065
  3. CLARITIN-D 12 HOUR [Concomitant]
     Active Substance: LORATADINE\PSEUDOEPHEDRINE SULFATE
     Dosage: 10-240 MG PER 24 TABLET
     Route: 065
  4. LYRICA [Concomitant]
     Active Substance: PREGABALIN
     Dosage: TWICE DAILY
     Route: 065
  5. MAGNESIUM OXIDE. [Concomitant]
     Active Substance: MAGNESIUM OXIDE
     Route: 065
  6. REMICADE [Suspect]
     Active Substance: INFLIXIMAB
     Indication: PRODUCT USED FOR UNKNOWN INDICATION
     Route: 042
  7. FOLVITE [Concomitant]
     Active Substance: FOLIC ACID
     Route: 065
  8. BENADRYL [Concomitant]
     Active Substance: DIPHENHYDRAMINE HYDROCHLORIDE
     Route: 065
  9. ULTRAM ER [Concomitant]
     Active Substance: TRAMADOL HYDROCHLORIDE
     Dosage: 200 MG 24 HR TABLET
     Route: 065
  10. CROMOLYN SODIUM. [Concomitant]
     Active Substance: CROMOLYN SODIUM
     Dosage: 20 MG/2ML
     Route: 065
  11. ROBAXIN [Concomitant]
     Active Substance: METHOCARBAMOL
     Route: 065
  12. ALBUTEROL. [Concomitant]
     Active Substance: ALBUTEROL
     Dosage: 90 MEG/ACTUATLON
     Route: 065
  13. METHOTREXATE. [Concomitant]
     Active Substance: METHOTREXATE
     Route: 065
  14. ULTRAM [Concomitant]
     Active Substance: TRAMADOL HYDROCHLORIDE
     Route: 065
  15. GAS-X [Concomitant]
     Active Substance: DIMETHICONE
     Route: 048
  16. DESYREL [Concomitant]
     Active Substance: TRAZODONE HYDROCHLORIDE
     Route: 065

REACTIONS (1)
  - Anaphylactic reaction [Unknown]
